FAERS Safety Report 6136585-7 (Version None)
Quarter: 2009Q1

REPORT INFORMATION
  Report Type: 
  Country: None (occurrence: None)
  Receive Date: 20090330
  Receipt Date: 20090318
  Transmission Date: 20090719
  Serious: Yes (Hospitalization, Other)
  Sender: FDA-Public Use
  Company Number: AU-PFIZER INC-2007039162

PATIENT

DRUGS (2)
  1. SALAZOPYRIN [Suspect]
     Indication: RHEUMATOID ARTHRITIS
     Dosage: 3 DAILY
     Dates: start: 20050101
  2. METHOBLASTIN [Suspect]
     Indication: RHEUMATOID ARTHRITIS
     Dosage: 10 MG, UNK
     Dates: start: 20050101

REACTIONS (14)
  - CHILLS [None]
  - COUGH [None]
  - HYPERSENSITIVITY [None]
  - HYPOAESTHESIA [None]
  - LIVER DISORDER [None]
  - MUSCULAR WEAKNESS [None]
  - NAUSEA [None]
  - PALLOR [None]
  - PARALYSIS [None]
  - PERIPHERAL COLDNESS [None]
  - PYREXIA [None]
  - SKIN HYPERPIGMENTATION [None]
  - STEVENS-JOHNSON SYNDROME [None]
  - YELLOW SKIN [None]
